FAERS Safety Report 6038812-3 (Version None)
Quarter: 2009Q1

REPORT INFORMATION
  Report Type: 
  Country: None (occurrence: None)
  Receive Date: 20090115
  Receipt Date: 20080821
  Transmission Date: 20090719
  Serious: No
  Sender: FDA-Public Use
  Company Number: US-ABBOTT-08P-163-0471915-00

PATIENT
  Sex: Male

DRUGS (1)
  1. ADVICOR [Suspect]
     Indication: DRUG USE FOR UNKNOWN INDICATION
     Dosage: 1000/40 MG DAILY, 500/20MG TWICE DAILY
     Route: 048
     Dates: start: 20080818

REACTIONS (2)
  - FLUSHING [None]
  - PARAESTHESIA [None]
